FAERS Safety Report 23523005 (Version 1)
Quarter: 2024Q1

REPORT INFORMATION
  Report Type: Spontaneous
  Country: US (occurrence: None)
  Receive Date: 20240213
  Receipt Date: 20240213
  Transmission Date: 20240410
  Serious: Yes (Other)
  Sender: FDA-Public Use
  Company Number: None

PATIENT
  Age: 70 Year
  Sex: Female
  Weight: 82.35 kg

DRUGS (17)
  1. SUTAB [Suspect]
     Active Substance: MAGNESIUM SULFATE\POTASSIUM CHLORIDE\SODIUM SULFATE
     Indication: Bowel preparation
     Dosage: OTHER FREQUENCY : 1ST DOSE IN THE EV;?
     Route: 048
     Dates: start: 20240211, end: 20240211
  2. MIRTAZAPINE [Concomitant]
     Active Substance: MIRTAZAPINE
  3. Baclofin [Concomitant]
  4. VITAMIN D [Concomitant]
     Active Substance: VITAMIN D NOS
  5. PREGABALIN [Concomitant]
     Active Substance: PREGABALIN
  6. Senexon [Concomitant]
  7. CLONAZEPAM [Concomitant]
     Active Substance: CLONAZEPAM
  8. ZOFRAN [Concomitant]
     Active Substance: ONDANSETRON HYDROCHLORIDE
  9. NORCO [Concomitant]
     Active Substance: ACETAMINOPHEN\HYDROCODONE BITARTRATE
  10. OMEPRAZOLE [Concomitant]
     Active Substance: OMEPRAZOLE
  11. POTASSIUM [Concomitant]
     Active Substance: POTASSIUM
  12. TYLENOL [Concomitant]
     Active Substance: ACETAMINOPHEN
  13. Calcium citrate + vitamin D 3 [Concomitant]
  14. Essential formula nutrients [Concomitant]
  15. PRILOSEC [Concomitant]
     Active Substance: OMEPRAZOLE MAGNESIUM
  16. MELATONIN [Concomitant]
     Active Substance: MELATONIN
  17. MAGNESIUM [Concomitant]
     Active Substance: MAGNESIUM

REACTIONS (3)
  - Vomiting [None]
  - Abdominal distension [None]
  - Pain [None]

NARRATIVE: CASE EVENT DATE: 20240211
